FAERS Safety Report 6105234-6 (Version None)
Quarter: 2009Q1

REPORT INFORMATION
  Report Type: 
  Country: None (occurrence: None)
  Receive Date: 20090304
  Receipt Date: 20090218
  Transmission Date: 20090719
  Serious: Yes (Other)
  Sender: FDA-Public Use
  Company Number: JPI-P-006153

PATIENT
  Age: 56 Year
  Sex: Female

DRUGS (2)
  1. XYREM [Suspect]
     Indication: SLEEP DISORDER
     Dosage: 6 GM (3 GM, 2 IN 1 D),ORAL;  9 GM (4.5 GM,2 IN 1 D),ORAL
     Route: 048
     Dates: start: 20080319
  2. XYREM [Suspect]
     Indication: SLEEP DISORDER
     Dosage: 6 GM (3 GM, 2 IN 1 D),ORAL;  9 GM (4.5 GM,2 IN 1 D),ORAL
     Route: 048
     Dates: start: 20090114

REACTIONS (1)
  - CARDIAC FAILURE CONGESTIVE [None]
